FAERS Safety Report 8695897 (Version 2)
Quarter: 2013Q4

REPORT INFORMATION
  Report Type: Spontaneous
  Country: US (occurrence: US)
  Receive Date: 20120801
  Receipt Date: 20131105
  Transmission Date: 20140711
  Serious: Yes (Life-Threatening, Hospitalization, Other)
  Sender: FDA-Public Use
  Company Number: US-009507513-1207USA010760

PATIENT
  Age: 78 Year
  Sex: Male

DRUGS (3)
  1. ZOCOR [Suspect]
     Route: 048
  2. FUSIDIC ACID [Suspect]
  3. FLOXACILLIN [Concomitant]

REACTIONS (6)
  - Mobility decreased [Unknown]
  - Myopathy [Unknown]
  - Blood creatine phosphokinase increased [Unknown]
  - Potentiating drug interaction [Unknown]
  - Pneumonia [Unknown]
  - Chromaturia [Unknown]
